FAERS Safety Report 8552288-3 (Version None)
Quarter: 2012Q3

REPORT INFORMATION
  Report Type: 
  Country: None (occurrence: None)
  Receive Date: 20120723
  Receipt Date: 20120723
  Transmission Date: 20120928
  Serious: No
  Sender: FDA-Public Use
  Company Number: None

PATIENT
  Age: 51 Year
  Sex: Male
  Weight: 95.2554 kg

DRUGS (10)
  1. HUMIRA [Suspect]
     Indication: CROHN'S DISEASE
     Dosage: 40 MG Q 14 DAYS- SQ
     Dates: start: 20120115, end: 20120721
  2. INTRATHECAL MORPHINE [Concomitant]
  3. CYMBALTA [Concomitant]
  4. FLEXERIL [Concomitant]
  5. BACLOFEN [Concomitant]
  6. ABILIFY [Concomitant]
  7. .. [Concomitant]
  8. AMBIEN [Concomitant]
  9. LYRICA [Concomitant]
  10. LEXAPRO [Concomitant]

REACTIONS (2)
  - FATIGUE [None]
  - RASH [None]
